FAERS Safety Report 24742961 (Version 1)
Quarter: 2024Q4

REPORT INFORMATION
  Report Type: Report from Study
  Country: US (occurrence: US)
  Receive Date: 20241217
  Receipt Date: 20241217
  Transmission Date: 20250115
  Serious: Yes (Other)
  Sender: ROCHE
  Company Number: US-ROCHE-10000099730

PATIENT
  Age: 58 Year
  Sex: Female

DRUGS (1)
  1. OCREVUS [Suspect]
     Active Substance: OCRELIZUMAB
     Indication: Multiple sclerosis
     Dosage: INFUSE 300MG INTRAVENOUSLY ON DAYS 1 AND 15 THEN INFUSE 600MG INTRAVENOUSLY EVERY 6 MONTHS
     Route: 042

REACTIONS (13)
  - Multiple sclerosis [Unknown]
  - Cerebrovascular accident [Unknown]
  - Hernia [Unknown]
  - Dizziness [Unknown]
  - Abdominal discomfort [Unknown]
  - Hepatitis C [Unknown]
  - Anxiety [Unknown]
  - Depression [Unknown]
  - Fibromyalgia [Unknown]
  - Intervertebral disc disorder [Unknown]
  - Migraine [Unknown]
  - Neck pain [Unknown]
  - Pain [Unknown]
